FAERS Safety Report 5236989-0 (Version None)
Quarter: 2007Q1

REPORT INFORMATION
  Report Type: 
  Country: None (occurrence: None)
  Receive Date: 20070209
  Receipt Date: 20070201
  Transmission Date: 20070707
  Serious: Yes (Hospitalization)
  Sender: FDA-Public Use
  Company Number: S06-USA-04921-01

PATIENT
  Age: 25 Year
  Sex: Female
  Weight: 80.7403 kg

DRUGS (9)
  1. LEXAPRO [Suspect]
     Indication: DEPRESSION
     Dosage: 10 MG QD; PO
     Route: 048
     Dates: start: 20061111, end: 20061112
  2. PROZAC [Suspect]
     Indication: DEPRESSION
     Dosage: 20 MG QD; PO
     Route: 048
     Dates: start: 20060801, end: 20061001
  3. PROZAC [Suspect]
     Indication: DEPRESSION
     Dosage: 40 MG QD; PO
     Route: 048
     Dates: start: 20061001, end: 20061110
  4. ZITHROMAX [Concomitant]
  5. DEPO-PROVERA SUSPENSION/INJ [Concomitant]
  6. TYLENOL W/ CODEINE NO. 3 [Concomitant]
  7. TIZANIDINE HCL [Concomitant]
  8. WOMEN'S MULTIVITAMIN (NOS) [Concomitant]
  9. PPD INJECTION [Concomitant]

REACTIONS (24)
  - AFFECT LABILITY [None]
  - AMNESIA [None]
  - ANXIETY [None]
  - BLOOD PRESSURE INCREASED [None]
  - CHEST DISCOMFORT [None]
  - CONDITION AGGRAVATED [None]
  - CRYING [None]
  - DECREASED APPETITE [None]
  - DEPRESSED MOOD [None]
  - DIARRHOEA [None]
  - DISTURBANCE IN ATTENTION [None]
  - DIZZINESS [None]
  - DYSPHEMIA [None]
  - DYSURIA [None]
  - FATIGUE [None]
  - INSOMNIA [None]
  - MALAISE [None]
  - MEMORY IMPAIRMENT [None]
  - MUSCLE RIGIDITY [None]
  - NAUSEA [None]
  - SEROTONIN SYNDROME [None]
  - SOMNOLENCE [None]
  - SPEECH DISORDER [None]
  - THINKING ABNORMAL [None]
